FAERS Safety Report 23381706 (Version 1)
Quarter: 2024Q1

REPORT INFORMATION
  Report Type: Spontaneous
  Country: US (occurrence: US)
  Receive Date: 20240109
  Receipt Date: 20240109
  Transmission Date: 20240410
  Serious: Yes (Other)
  Sender: FDA-Public Use
  Company Number: US-LUOXIN-LUX-2024-US-LIT-00001

PATIENT
  Age: 27 Year
  Sex: Female

DRUGS (5)
  1. ALBUTEROL SULFATE [Suspect]
     Active Substance: ALBUTEROL SULFATE
     Indication: Dyspnoea
  2. PREDNISONE [Suspect]
     Active Substance: PREDNISONE
     Indication: Dyspnoea
  3. PREDNISONE [Suspect]
     Active Substance: PREDNISONE
     Indication: Wheezing
  4. CETIRIZINE [Suspect]
     Active Substance: CETIRIZINE HYDROCHLORIDE
     Indication: Dyspnoea
  5. CETIRIZINE [Suspect]
     Active Substance: CETIRIZINE HYDROCHLORIDE
     Indication: Wheezing

REACTIONS (1)
  - Drug ineffective [Unknown]
